FAERS Safety Report 11165341 (Version 1)
Quarter: 2015Q2

REPORT INFORMATION
  Report Type: Spontaneous
  Country: US (occurrence: None)
  Receive Date: 20150603
  Receipt Date: 20150603
  Transmission Date: 20150821
  Serious: Yes (Life-Threatening, Hospitalization, Disabling)
  Sender: FDA-Public Use
  Company Number: None

PATIENT
  Age: 59 Year
  Sex: Female
  Weight: 53.98 kg

DRUGS (10)
  1. AYURVEYDIC HERBALS [Concomitant]
  2. ALBUTEROL. [Concomitant]
     Active Substance: ALBUTEROL
  3. CALCIUM/MG/VITAMIN D SUPPLEMENT [Concomitant]
  4. CHLORPHENIRAMINE MALEATE. [Concomitant]
     Active Substance: CHLORPHENIRAMINE MALEATE
  5. KAISHORE GUGGULU [Concomitant]
  6. ANASTRAZOLE [Suspect]
     Active Substance: ANASTROZOLE
     Indication: BREAST CANCER
     Route: 048
     Dates: start: 20120601, end: 20130801
  7. ACETAMINOPHEN. [Concomitant]
     Active Substance: ACETAMINOPHEN
  8. MEDICINAL TEA HERBS [Concomitant]
  9. ATROVENT [Concomitant]
     Active Substance: IPRATROPIUM BROMIDE
  10. DIGESTIVE SPICES [Concomitant]

REACTIONS (10)
  - Gastrointestinal haemorrhage [None]
  - Skin lesion [None]
  - Erythema [None]
  - Musculoskeletal disorder [None]
  - Visual acuity reduced [None]
  - Ligament disorder [None]
  - Tremor [None]
  - Diarrhoea [None]
  - Pruritus [None]
  - Gluten free diet [None]

NARRATIVE: CASE EVENT DATE: 20120711
